FAERS Safety Report 9861831 (Version 3)
Quarter: 2014Q2

REPORT INFORMATION
  Report Type: Spontaneous
  Country: US (occurrence: US)
  Receive Date: 20140203
  Receipt Date: 20140404
  Transmission Date: 20141212
  Serious: No
  Sender: FDA-Public Use
  Company Number: US-PFIZER INC-2014027714

PATIENT
  Age: 57 Year
  Sex: Female

DRUGS (2)
  1. PREMPRO [Suspect]
     Dosage: 0.3/1.5 MG, 1X/DAY
     Route: 048
  2. PREMPRO [Suspect]

REACTIONS (2)
  - Hot flush [Unknown]
  - Product quality issue [Unknown]
